FAERS Safety Report 9518242 (Version 1)
Quarter: 2013Q3

REPORT INFORMATION
  Report Type: Spontaneous
  Country: GB (occurrence: None)
  Receive Date: 20130910
  Receipt Date: 20130910
  Transmission Date: 20140515
  Serious: Yes (Other)
  Sender: FDA-Public Use
  Company Number: GER/UKI/13/0034432

PATIENT
  Sex: 0

DRUGS (1)
  1. FLUOXETINE [Suspect]
     Indication: PRODUCT USED FOR UNKNOWN INDICATION

REACTIONS (7)
  - Dyspepsia [None]
  - Malaise [None]
  - Dry skin [None]
  - Pruritus [None]
  - Insomnia [None]
  - Fatigue [None]
  - Product quality issue [None]
